FAERS Safety Report 10992478 (Version 2)
Quarter: 2015Q2

REPORT INFORMATION
  Report Type: Spontaneous
  Country: US (occurrence: US)
  Receive Date: 20150406
  Receipt Date: 20150408
  Transmission Date: 20150821
  Serious: Yes (Hospitalization, Other)
  Sender: FDA-Public Use
  Company Number: US-TAKEDA-2015TUS004206

PATIENT
  Age: 47 Year
  Sex: Female

DRUGS (1)
  1. CONTRAVE [Suspect]
     Active Substance: BUPROPION HYDROCHLORIDE\NALTREXONE HYDROCHLORIDE
     Indication: WEIGHT CONTROL
     Dosage: TWO DOSE IN MORNING AND ONE IN EVENING
     Route: 048
     Dates: start: 201501, end: 201503

REACTIONS (3)
  - Suicidal ideation [Unknown]
  - Depression [Unknown]
  - Hallucination, auditory [Unknown]
